FAERS Safety Report 21716876 (Version 3)
Quarter: 2023Q1

REPORT INFORMATION
  Report Type: Spontaneous
  Country: JP (occurrence: JP)
  Receive Date: 20221212
  Receipt Date: 20230131
  Transmission Date: 20230418
  Serious: Yes (Other)
  Sender: FDA-Public Use
  Company Number: JP-OTSUKA-2022_054309

PATIENT
  Age: 20 Year
  Sex: Male

DRUGS (1)
  1. REXULTI [Suspect]
     Active Substance: BREXPIPRAZOLE
     Indication: Schizophrenia
     Dosage: 1MG/DAY
     Route: 065

REACTIONS (3)
  - Hallucination, auditory [Recovering/Resolving]
  - Disorganised speech [Recovering/Resolving]
  - Abnormal behaviour [Recovering/Resolving]
